FAERS Safety Report 14819575 (Version 2)
Quarter: 2018Q2

REPORT INFORMATION
  Report Type: Spontaneous
  Country: US (occurrence: US)
  Receive Date: 20180427
  Receipt Date: 20180615
  Transmission Date: 20180711
  Serious: No
  Sender: FDA-Public Use
  Company Number: US-TEVA-2018-US-882195

PATIENT
  Sex: Male

DRUGS (1)
  1. TESTOSTERONE. [Suspect]
     Active Substance: TESTOSTERONE
     Route: 065

REACTIONS (4)
  - Malaise [Not Recovered/Not Resolved]
  - Poor quality drug administered [Unknown]
  - Wrong technique in product usage process [Unknown]
  - Product deposit [Unknown]
